FAERS Safety Report 19507279 (Version 4)
Quarter: 2021Q3

REPORT INFORMATION
  Report Type: Spontaneous
  Country: JP (occurrence: JP)
  Receive Date: 20210708
  Receipt Date: 20210930
  Transmission Date: 20211014
  Serious: Yes (Hospitalization)
  Sender: FDA-Public Use
  Company Number: JP-ABBVIE-21K-087-3941999-00

PATIENT
  Age: 45 Year
  Sex: Male
  Weight: 69 kg

DRUGS (7)
  1. PYRETHIA [Suspect]
     Active Substance: PROMETHAZINE HYDROCHLORIDE
     Indication: ANXIETY DISORDER
     Route: 048
     Dates: start: 202001
  2. HIRNAMIN [Suspect]
     Active Substance: LEVOMEPROMAZINE
     Indication: ANXIETY DISORDER
     Route: 048
     Dates: start: 202001
  3. BELSOMRA [Suspect]
     Active Substance: SUVOREXANT
     Indication: ANXIETY DISORDER
     Route: 048
     Dates: start: 202001
  4. MAVIRET [Suspect]
     Active Substance: GLECAPREVIR\PIBRENTASVIR
     Indication: CHRONIC HEPATITIS C
     Route: 048
     Dates: start: 20210525, end: 20210531
  5. MAVIRET [Suspect]
     Active Substance: GLECAPREVIR\PIBRENTASVIR
     Route: 048
     Dates: start: 20210608
  6. RISPERIDONE. [Suspect]
     Active Substance: RISPERIDONE
     Indication: ANXIETY DISORDER
     Route: 048
     Dates: start: 202001
  7. FLUNITRAZEPAM [Suspect]
     Active Substance: FLUNITRAZEPAM
     Indication: ANXIETY DISORDER
     Route: 048
     Dates: start: 202001

REACTIONS (11)
  - Gastrooesophageal reflux disease [Recovered/Resolved]
  - Dehydration [Recovered/Resolved]
  - General physical health deterioration [Unknown]
  - Oesophageal mucosa erythema [Unknown]
  - Erythema [Unknown]
  - Rhabdomyolysis [Recovered/Resolved]
  - Renal disorder [Unknown]
  - Nausea [Recovered/Resolved]
  - Gastrointestinal mucosa hyperaemia [Unknown]
  - Chronic gastritis [Unknown]
  - Decreased appetite [Unknown]

NARRATIVE: CASE EVENT DATE: 20210526
